FAERS Safety Report 12460770 (Version 1)
Quarter: 2016Q2

REPORT INFORMATION
  Report Type: Not Available
  Country: US (occurrence: US)
  Receive Date: 20160613
  Receipt Date: 20160613
  Transmission Date: 20160815
  Serious: No
  Sender: FDA-Public Use
  Company Number: US-ANIPHARMA-2015-US-001375

PATIENT
  Age: 71 Year
  Sex: Female

DRUGS (3)
  1. PROPRANOLOL [Suspect]
     Active Substance: PROPRANOLOL\PROPRANOLOL HYDROCHLORIDE
     Dosage: ONE CAPSULE DAILY
     Route: 048
     Dates: start: 20150605
  2. PROPRANOLOL [Suspect]
     Active Substance: PROPRANOLOL\PROPRANOLOL HYDROCHLORIDE
     Dosage: ONE CAPSULE DAILY
     Route: 048
  3. PROPRANOLOL [Suspect]
     Active Substance: PROPRANOLOL\PROPRANOLOL HYDROCHLORIDE
     Dosage: ONE CAPSULE DAILY
     Route: 048
     Dates: start: 201309

REACTIONS (18)
  - Hypertension [Unknown]
  - Malaise [Unknown]
  - Blood pressure fluctuation [Unknown]
  - Palpitations [Unknown]
  - Arrhythmia [Unknown]
  - Abdominal pain lower [Unknown]
  - Vision blurred [Unknown]
  - Dizziness [Unknown]
  - Drug ineffective for unapproved indication [Unknown]
  - Abdominal discomfort [Unknown]
  - Headache [Unknown]
  - Respiratory tract infection [Unknown]
  - Heart rate increased [Unknown]
  - Fatigue [Unknown]
  - Diarrhoea [Unknown]
  - Abdominal distension [Unknown]
  - Drug ineffective [Unknown]
  - Abdominal pain [Unknown]
